FAERS Safety Report 19081676 (Version 2)
Quarter: 2024Q4

REPORT INFORMATION
  Report Type: Spontaneous
  Country: US (occurrence: US)
  Receive Date: 20210401
  Receipt Date: 20241121
  Transmission Date: 20250114
  Serious: Yes (Other)
  Sender: AUROBINDO
  Company Number: US-EMA-20161010-ASHISHVP-103843235

PATIENT
  Age: 37 Year
  Sex: Male

DRUGS (21)
  1. MELPHALAN [Suspect]
     Active Substance: MELPHALAN
     Indication: Hodgkin^s disease
     Dosage: UNK
     Route: 065
  2. GEMCITABINE [Suspect]
     Active Substance: GEMCITABINE
     Indication: Hodgkin^s disease
     Dosage: UNK
     Route: 065
  3. REVLIMID [Suspect]
     Active Substance: LENALIDOMIDE
     Indication: Hodgkin^s disease
     Dosage: UNK
     Route: 048
  4. VINORELBINE [Suspect]
     Active Substance: VINORELBINE TARTRATE
     Indication: Hodgkin^s disease
     Dosage: UNK
     Route: 065
  5. SIROLIMUS [Concomitant]
     Active Substance: SIROLIMUS
     Indication: Hodgkin^s disease
     Dosage: UNK
     Route: 065
  6. VINBLASTINE [Concomitant]
     Active Substance: VINBLASTINE
     Indication: Hodgkin^s disease
     Dosage: UNK
     Route: 065
  7. VORINOSTAT [Concomitant]
     Active Substance: VORINOSTAT
     Indication: Hodgkin^s disease
     Dosage: UNK
     Route: 065
  8. DOXORUBICIN [Concomitant]
     Active Substance: DOXORUBICIN
     Indication: Hodgkin^s disease
     Dosage: UNK
     Route: 065
  9. FLUDARABINE [Concomitant]
     Active Substance: FLUDARABINE PHOSPHATE
     Indication: Hodgkin^s disease
     Dosage: UNK
     Route: 065
  10. CYTARABINE [Concomitant]
     Active Substance: CYTARABINE
     Indication: Hodgkin^s disease
     Dosage: UNK
     Route: 065
  11. EVEROLIMUS [Concomitant]
     Active Substance: EVEROLIMUS
     Indication: Hodgkin^s disease
     Dosage: UNK
     Route: 065
  12. BLEOMYCIN [Concomitant]
     Active Substance: BLEOMYCIN SULFATE
     Indication: Hodgkin^s disease
     Dosage: UNK
     Route: 065
  13. ETOPOSIDE [Concomitant]
     Active Substance: ETOPOSIDE
     Indication: Hodgkin^s disease
     Dosage: UNK
     Route: 065
  14. BRENTUXIMAB [Concomitant]
     Active Substance: BRENTUXIMAB
     Indication: Hodgkin^s disease
     Dosage: UNK
     Route: 065
  15. LENALIDOMIDE [Concomitant]
     Active Substance: LENALIDOMIDE
     Indication: Hodgkin^s disease
     Dosage: UNK
     Route: 065
  16. DACARBAZINE [Concomitant]
     Active Substance: DACARBAZINE
     Indication: Hodgkin^s disease
     Dosage: UNK
     Route: 065
  17. DEXAMETHASONE [Concomitant]
     Active Substance: DEXAMETHASONE
     Indication: Hodgkin^s disease
     Dosage: UNK
     Route: 065
  18. CARBOPLATIN [Concomitant]
     Active Substance: CARBOPLATIN
     Indication: Hodgkin^s disease
     Dosage: UNK
     Route: 065
  19. BENDAMUSTINE [Concomitant]
     Active Substance: BENDAMUSTINE
     Indication: Hodgkin^s disease
     Dosage: UNK
     Route: 065
  20. IFOSFAMIDE [Concomitant]
     Active Substance: IFOSFAMIDE
     Indication: Hodgkin^s disease
     Dosage: UNK
     Route: 065
  21. CISPLATIN [Concomitant]
     Active Substance: CISPLATIN
     Indication: Hodgkin^s disease
     Dosage: UNK
     Route: 065

REACTIONS (3)
  - Graft versus host disease [Unknown]
  - Off label use [Unknown]
  - Product use in unapproved indication [Unknown]
